FAERS Safety Report 7301984-4 (Version None)
Quarter: 2011Q1

REPORT INFORMATION
  Report Type: 
  Country: None (occurrence: None)
  Receive Date: 20110218
  Receipt Date: 20110211
  Transmission Date: 20110831
  Serious: Yes (Death, Other)
  Sender: FDA-Public Use
  Company Number: ID-ROCHE-759758

PATIENT
  Age: 8 Year
  Sex: Male
  Weight: 16 kg

DRUGS (9)
  1. CIPROFLOXACIN [Concomitant]
     Dates: start: 20090226
  2. DEXAMETHASONE [Concomitant]
     Dates: start: 20090228
  3. CHLORAMPHENICOL [Concomitant]
     Dates: start: 20090223
  4. CIMETIDINE [Concomitant]
     Dates: start: 20090228
  5. OSELTAMIVIR [Suspect]
     Indication: AVIAN INFLUENZA
     Route: 065
     Dates: start: 20090227
  6. COTRIM [Concomitant]
     Dates: start: 20090218
  7. AMOXICILLIN [Concomitant]
     Dates: start: 20090220, end: 20090223
  8. GENTAMICIN [Concomitant]
     Dates: start: 20090228
  9. ACETAMINOPHEN [Concomitant]
     Dates: start: 20090220

REACTIONS (5)
  - LEUKOPENIA [None]
  - RESPIRATORY FAILURE [None]
  - PNEUMONIA [None]
  - THROMBOCYTOPENIA [None]
  - ANAEMIA [None]
